FAERS Safety Report 5406151-7 (Version None)
Quarter: 2007Q3

REPORT INFORMATION
  Report Type: 
  Country: None (occurrence: None)
  Receive Date: 20070802
  Receipt Date: 20070802
  Transmission Date: 20080115
  Serious: Yes (Other)
  Sender: FDA-Public Use
  Company Number: None

PATIENT
  Age: 55 Year
  Sex: Female
  Weight: 67.1324 kg

DRUGS (2)
  1. LEVAQUIN [Suspect]
     Indication: BRONCHITIS
     Dosage: 500 MG QD X 10 DAYS PO
     Route: 048
     Dates: start: 20070724, end: 20070729
  2. LEVAQUIN [Suspect]
     Indication: PNEUMONIA
     Dosage: 500 MG QD X 10 DAYS PO
     Route: 048
     Dates: start: 20070724, end: 20070729

REACTIONS (11)
  - ASTHENIA [None]
  - CRYING [None]
  - DEAFNESS [None]
  - FACIAL PALSY [None]
  - FATIGUE [None]
  - HEADACHE [None]
  - INSOMNIA [None]
  - MUSCLE SPASMS [None]
  - MUSCULOSKELETAL PAIN [None]
  - NECK PAIN [None]
  - NERVOUSNESS [None]
